FAERS Safety Report 23284632 (Version 3)
Quarter: 2024Q3

REPORT INFORMATION
  Report Type: Spontaneous
  Country: DE (occurrence: DE)
  Receive Date: 20231211
  Receipt Date: 20240712
  Transmission Date: 20241017
  Serious: Yes (Other)
  Sender: ROCHE
  Company Number: DE-ROCHE-3468695

PATIENT
  Age: 37 Year
  Sex: Female

DRUGS (4)
  1. OCREVUS [Suspect]
     Active Substance: OCRELIZUMAB
     Indication: Relapsing-remitting multiple sclerosis
     Dosage: LAST INFUSION ON 18/SEP/2023
     Route: 065
  2. LEVOTHYROXINE SODIUM [Concomitant]
     Active Substance: LEVOTHYROXINE SODIUM
     Dosage: 0.05 MG TABLET BEFORE MEAL
     Route: 048
  3. OZYM [Concomitant]
     Dosage: 40,000 PH EUR U DURING MEALS; WITH PLENTY OF FLUIDS
  4. MIRTAZAPINE [Concomitant]
     Active Substance: MIRTAZAPINE
     Dosage: FTA 20 PIECES N1

REACTIONS (1)
  - Hormone receptor positive breast cancer [Unknown]
